FAERS Safety Report 5705445-5 (Version None)
Quarter: 2008Q2

REPORT INFORMATION
  Report Type: 
  Country: None (occurrence: None)
  Receive Date: 20080410
  Receipt Date: 20080401
  Transmission Date: 20081010
  Serious: Yes (Hospitalization, Other)
  Sender: FDA-Public Use
  Company Number: 2008AP000723

PATIENT
  Age: 41 Year
  Sex: Female

DRUGS (5)
  1. HALOPERIDOL [Suspect]
     Indication: AGITATION
  2. BENZTROPINE MESYLATE [Suspect]
     Indication: AGITATION
  3. LORAZEPAM [Concomitant]
  4. PHENYTOIN [Concomitant]
  5. ACYCLOVIR [Concomitant]

REACTIONS (38)
  - ABULIA [None]
  - BETA HAEMOLYTIC STREPTOCOCCAL INFECTION [None]
  - BLOOD COUNT ABNORMAL [None]
  - BLUNTED AFFECT [None]
  - BRADYCARDIA [None]
  - BRADYKINESIA [None]
  - CATATONIA [None]
  - COGNITIVE DISORDER [None]
  - COMMUNICATION DISORDER [None]
  - CONSCIOUSNESS FLUCTUATING [None]
  - DEPRESSED LEVEL OF CONSCIOUSNESS [None]
  - DISORIENTATION [None]
  - DYSARTHRIA [None]
  - DYSTONIA [None]
  - ECHOLALIA [None]
  - ENCEPHALITIS [None]
  - ENCEPHALITIS ALLERGIC [None]
  - ENCEPHALITIS VIRAL [None]
  - FLAT AFFECT [None]
  - HALLUCINATION, VISUAL [None]
  - HYPERREFLEXIA [None]
  - HYPERSEXUALITY [None]
  - HYPOPNOEA [None]
  - HYPOTONIA [None]
  - MENTAL DISORDER [None]
  - MOVEMENT DISORDER [None]
  - NEUROLEPTIC MALIGNANT SYNDROME [None]
  - NO THERAPEUTIC RESPONSE [None]
  - PNEUMONIA ASPIRATION [None]
  - PSYCHOMOTOR HYPERACTIVITY [None]
  - PULMONARY EMBOLISM [None]
  - PYREXIA [None]
  - RETROGRADE AMNESIA [None]
  - SPEECH DISORDER [None]
  - THINKING ABNORMAL [None]
  - TOOTH FRACTURE [None]
  - URINARY TRACT INFECTION [None]
  - WHITE BLOOD CELL COUNT DECREASED [None]
